FAERS Safety Report 5652342-X (Version None)
Quarter: 2008Q1

REPORT INFORMATION
  Report Type: 
  Country: None (occurrence: None)
  Receive Date: 20080305
  Receipt Date: 20080305
  Transmission Date: 20080703
  Serious: Yes (Death, Life-Threatening, Hospitalization)
  Sender: FDA-Public Use
  Company Number: None

PATIENT
  Sex: Female
  Weight: 88 kg

DRUGS (4)
  1. COUMADIN [Suspect]
     Indication: THROMBOSIS PROPHYLAXIS
     Dosage: 2.5MG 5MG ALTERNATING DAYS PO HOME MEDICATION
     Route: 048
  2. ASPIRIN [Suspect]
     Dosage: 325 DAILY PO HOME MEDICATION
     Route: 048
  3. BIAXIN [Suspect]
     Dosage: 500MG BID PO
     Route: 048
     Dates: start: 20080217, end: 20080221
  4. MEDROL [Suspect]
     Dosage: 4MG AS DIRECTED PO
     Route: 048
     Dates: start: 20080217, end: 20080221

REACTIONS (5)
  - COMPUTERISED TOMOGRAM ABNORMAL [None]
  - DRUG INTERACTION [None]
  - HAEMORRHAGE [None]
  - INTERNATIONAL NORMALISED RATIO INCREASED [None]
  - UNRESPONSIVE TO STIMULI [None]
